FAERS Safety Report 13506212 (Version 1)
Quarter: 2017Q2

REPORT INFORMATION
  Report Type: Spontaneous
  Country: US (occurrence: US)
  Receive Date: 20170502
  Receipt Date: 20170502
  Transmission Date: 20170830
  Serious: Yes (Life-Threatening, Other)
  Sender: FDA-Public Use
  Company Number: US-ROCHE-1308063

PATIENT
  Age: 72 Year
  Sex: Female
  Weight: 50.39 kg

DRUGS (3)
  1. AVASTIN [Suspect]
     Active Substance: BEVACIZUMAB
     Indication: NON-SMALL CELL LUNG CANCER
     Route: 042
     Dates: start: 20131001, end: 20131014
  2. CARBOPLATIN. [Concomitant]
     Active Substance: CARBOPLATIN
     Indication: NON-SMALL CELL LUNG CANCER
     Dosage: AVC 5
     Route: 042
     Dates: start: 20131001, end: 20131014
  3. TAXOL [Concomitant]
     Active Substance: PACLITAXEL
     Indication: NON-SMALL CELL LUNG CANCER
     Route: 042
     Dates: start: 20131001, end: 20131014

REACTIONS (5)
  - Deep vein thrombosis [Recovered/Resolved with Sequelae]
  - Pulmonary thrombosis [Unknown]
  - Pulmonary embolism [Recovered/Resolved with Sequelae]
  - Thrombosis [Unknown]
  - Subarachnoid haemorrhage [Not Recovered/Not Resolved]

NARRATIVE: CASE EVENT DATE: 20131014
